FAERS Safety Report 7458482-7 (Version None)
Quarter: 2011Q2

REPORT INFORMATION
  Report Type: 
  Country: None (occurrence: None)
  Receive Date: 20110504
  Receipt Date: 20110427
  Transmission Date: 20111010
  Serious: Yes (Hospitalization, Other)
  Sender: FDA-Public Use
  Company Number: US-AMGEN-US351098

PATIENT
  Age: 49 Year
  Sex: Female
  Weight: 127.1 kg

DRUGS (18)
  1. NPLATE [Suspect]
     Indication: IDIOPATHIC THROMBOCYTOPENIC PURPURA
     Dosage: 130 A?G, QWK
     Route: 058
     Dates: start: 20081023
  2. VINCRISTINE SULFATE [Concomitant]
     Dosage: UNK UNK, UNK
     Route: 065
     Dates: start: 20090112, end: 20090202
  3. THEOPHYLLINE [Concomitant]
     Dosage: UNK UNK, UNK
     Route: 065
  4. AMLODIPINE BESILATE [Concomitant]
     Dosage: UNK UNK, UNK
     Route: 065
  5. NPLATE [Suspect]
     Dosage: 400 A?G, QWK
     Dates: start: 20081101
  6. NPLATE [Suspect]
     Dosage: 125 A?G, QWK
     Route: 058
     Dates: start: 20100526
  7. POTASSIUM CHLORIDE [Concomitant]
     Dosage: UNK UNK, UNK
     Route: 065
  8. NPLATE [Suspect]
     Dosage: 500 A?G, QWK
     Dates: start: 20081101
  9. NPLATE [Suspect]
     Dosage: 750 A?G, QWK
     Dates: start: 20081101
  10. NPLATE [Suspect]
     Dosage: 1000 A?G, QWK
     Dates: start: 20081201
  11. DECADRON [Concomitant]
  12. NPLATE [Suspect]
     Dosage: 250 A?G, QWK
     Dates: start: 20081001
  13. LEVETIRACETAM [Concomitant]
     Dosage: UNK UNK, UNK
     Route: 065
  14. NPLATE [Suspect]
     Dosage: 1250 A?G, UNK
     Dates: start: 20081201, end: 20090122
  15. EZETIMIBE [Concomitant]
     Dosage: UNK UNK, UNK
     Route: 065
  16. ATENOLOL [Concomitant]
     Dosage: UNK UNK, UNK
     Route: 065
  17. IRON [Concomitant]
     Dosage: UNK UNK, UNK
     Route: 065
  18. AMINOCAPROIC ACID [Concomitant]
     Dosage: UNK UNK, UNK
     Route: 065

REACTIONS (4)
  - HOSPITALISATION [None]
  - OSTEOARTHRITIS [None]
  - DRUG INEFFECTIVE [None]
  - CELLULITIS [None]
